FAERS Safety Report 4620919-6 (Version None)
Quarter: 2005Q1

REPORT INFORMATION
  Report Type: 
  Country: None (occurrence: None)
  Receive Date: 20050325
  Receipt Date: 20050308
  Transmission Date: 20050727
  Serious: No
  Sender: FDA-Public Use
  Company Number: A01200501488

PATIENT
  Age: 75 Year
  Sex: Male

DRUGS (6)
  1. XATRAL XL - (ALFUZOSIN HYDROCHLORIDE) - TABLET PR - 10 MG [Suspect]
     Indication: PROSTATITIS
     Dosage: 10 MG OD, ORAL
     Route: 048
     Dates: start: 20050131, end: 20050210
  2. IBUPROFEN [Concomitant]
  3. ASPIRIN 9ACETYLSALICYLIC ACID0 [Concomitant]
  4. RAMIPRIL [Concomitant]
  5. ISMO [Concomitant]
  6. PRAVASTATIN [Concomitant]

REACTIONS (2)
  - ANGIONEUROTIC OEDEMA [None]
  - SWELLING FACE [None]
